FAERS Safety Report 6435575-4 (Version None)
Quarter: 2009Q4

REPORT INFORMATION
  Report Type: 
  Country: None (occurrence: None)
  Receive Date: 20091110
  Receipt Date: 20070917
  Transmission Date: 20100525
  Serious: No
  Sender: FDA-Public Use
  Company Number: AECAN200700216

PATIENT
  Age: 69 Year
  Sex: Female
  Weight: 50.44 kg

DRUGS (34)
  1. GAMUNEX [Suspect]
     Indication: POLYNEUROPATHY
     Dosage: 12 ML;1X;IV
     Route: 042
     Dates: start: 20070828, end: 20070828
  2. DICYCLOMINE HYDROCHLORIDE [Concomitant]
  3. PANTOPRAZOLE [Concomitant]
  4. RIVASE [Concomitant]
  5. ATIVAN [Concomitant]
  6. PREMARIN [Concomitant]
  7. DOMPERIDONE [Concomitant]
  8. HYDROCORTISONE [Concomitant]
  9. ACETAMINOPHEN [Concomitant]
  10. POTASSIUM CHLORIDE [Concomitant]
  11. METHYLPREDNISOLONE [Concomitant]
  12. NYSTATIN [Concomitant]
  13. ERYTHROMYCIN [Concomitant]
  14. DICYCLOMINE [Concomitant]
  15. HEPARIN [Concomitant]
  16. METOPROLOL TARTRATE [Concomitant]
  17. ATORVASTATIN [Concomitant]
  18. ASPIRIN [Concomitant]
  19. CAL-D [Concomitant]
  20. CLOPIDOGREL [Concomitant]
  21. SODIUM CHLORIDE [Concomitant]
  22. K-DUR [Concomitant]
  23. ALBUMIN (HUMAN) [Concomitant]
  24. MAGNESIUM [Concomitant]
  25. CODEINE [Concomitant]
  26. POTASSIUM PHOSPHATES [Concomitant]
  27. MAALOX [Concomitant]
  28. DILAUDID [Concomitant]
  29. QUININE SULFATE [Concomitant]
  30. NEURONTIN [Concomitant]
  31. ELAVIL [Concomitant]
  32. AZITHROMYCIN [Concomitant]
  33. CALCIUM GLUCONATE [Concomitant]
  34. STATEX [Concomitant]

REACTIONS (2)
  - BACK PAIN [None]
  - INFUSION RELATED REACTION [None]
